FAERS Safety Report 8486432-3 (Version None)
Quarter: 2012Q3

REPORT INFORMATION
  Report Type: 
  Country: None (occurrence: None)
  Receive Date: 20120703
  Receipt Date: 20120618
  Transmission Date: 20120928
  Serious: Yes (Other)
  Sender: FDA-Public Use
  Company Number: CHPA2012US002227

PATIENT
  Sex: Female

DRUGS (4)
  1. NEXIUM [Concomitant]
     Dosage: 40 MG, UNK
  2. EXCEDRIN EXTRA STRENGTH TABLETS [Suspect]
     Indication: BACK PAIN
     Dosage: OFF AND ON, FOR 25-30 YEARS OR SO
     Route: 048
  3. XANAX [Concomitant]
     Dosage: 0.5 MG, PRN
  4. ESTRACE [Concomitant]
     Dosage: 1 MG, 1/4 Q 3DAYS

REACTIONS (9)
  - SKIN DISCOLOURATION [None]
  - PAIN [None]
  - DERMATITIS [None]
  - SKIN LESION [None]
  - OFF LABEL USE [None]
  - LICHEN PLANUS [None]
  - RASH [None]
  - PRURITUS [None]
  - SCAR [None]
